FAERS Safety Report 15827394 (Version 1)
Quarter: 2019Q1

REPORT INFORMATION
  Report Type: Spontaneous
  Country: BR (occurrence: BR)
  Receive Date: 20190115
  Receipt Date: 20190115
  Transmission Date: 20190417
  Serious: Yes (Hospitalization)
  Sender: FDA-Public Use
  Company Number: BR-OXFORD PHARMACEUTICALS, LLC-2019OXF00001

PATIENT
  Age: 63 Year
  Sex: Female

DRUGS (1)
  1. CAPTOPRIL. [Suspect]
     Active Substance: CAPTOPRIL
     Indication: HYPERTENSION
     Dosage: 50 MG, 1X/DAY
     Route: 065

REACTIONS (1)
  - Insulin autoimmune syndrome [Recovering/Resolving]

NARRATIVE: CASE EVENT DATE: 2015
